FAERS Safety Report 5260842-X (Version None)
Quarter: 2007Q1

REPORT INFORMATION
  Report Type: 
  Country: None (occurrence: None)
  Receive Date: 20070309
  Receipt Date: 20070307
  Transmission Date: 20070707
  Serious: Yes (Death)
  Sender: FDA-Public Use
  Company Number: US-BRISTOL-MYERS SQUIBB COMPANY-13658844

PATIENT
  Age: 62 Year
  Sex: Male

DRUGS (9)
  1. GLUCOPHAGE [Suspect]
     Indication: DIABETES MELLITUS NON-INSULIN-DEPENDENT
     Route: 048
     Dates: start: 20040605
  2. LASIX [Concomitant]
  3. ALTACE [Concomitant]
  4. DIGOXIN [Concomitant]
  5. TOPROL-XL [Concomitant]
  6. LIPITOR [Concomitant]
  7. POTASSIUM ACETATE [Concomitant]
  8. PLAVIX [Concomitant]
  9. ASPIRIN [Concomitant]

REACTIONS (1)
  - DEATH [None]
